FAERS Safety Report 18557704 (Version 1)
Quarter: 2020Q4

REPORT INFORMATION
  Report Type: Spontaneous
  Country: US (occurrence: US)
  Receive Date: 20201130
  Receipt Date: 20201130
  Transmission Date: 20210114
  Serious: Yes (Hospitalization, Other)
  Sender: FDA-Public Use
  Company Number: US-LUPIN PHARMACEUTICALS INC.-2020-09489

PATIENT
  Age: 42 Year
  Sex: Male

DRUGS (3)
  1. TRIAMCINOLONE ACETONIDE. [Suspect]
     Active Substance: TRIAMCINOLONE ACETONIDE
     Indication: MACULAR OEDEMA
     Dosage: UNK, INJECTION
  2. BEVACIZUMAB. [Suspect]
     Active Substance: BEVACIZUMAB
     Indication: MACULAR OEDEMA
     Dosage: INTRAVITREAL BEVACIZUMAB INJECTION AT 6-WEEK INTERVALS INITIALLY FOR MACULAR OEDEMA
  3. BEVACIZUMAB. [Suspect]
     Active Substance: BEVACIZUMAB
     Dosage: THE FREQUENCY OF INTRAVITREAL BEVACIZUMAB INJECTION WAS REDUCED TO 4 WEEK INTERVAL

REACTIONS (2)
  - Uveitis [Recovering/Resolving]
  - Non-infectious endophthalmitis [Recovering/Resolving]
